FAERS Safety Report 12246212 (Version 2)
Quarter: 2016Q2

REPORT INFORMATION
  Report Type: Spontaneous
  Country: US (occurrence: US)
  Receive Date: 20160407
  Receipt Date: 20160426
  Transmission Date: 20160815
  Serious: Yes (Death)
  Sender: FDA-Public Use
  Company Number: US-MALLINCKRODT-T201601133

PATIENT
  Sex: Male

DRUGS (17)
  1. ROBINUL [Concomitant]
     Active Substance: GLYCOPYRROLATE
  2. ZYRTEC [Concomitant]
     Active Substance: CETIRIZINE HYDROCHLORIDE
  3. ZITHROMAX [Concomitant]
     Active Substance: AZITHROMYCIN DIHYDRATE
  4. MIRALAX [Concomitant]
     Active Substance: POLYETHYLENE GLYCOL 3350
  5. KENALOG [Concomitant]
     Active Substance: TRIAMCINOLONE ACETONIDE
  6. DIAZEPAM. [Concomitant]
     Active Substance: DIAZEPAM
  7. POLYMYXIN [Concomitant]
     Active Substance: POLYMYXIN
  8. GABLOFEN [Suspect]
     Active Substance: BACLOFEN
     Indication: MUSCLE SPASTICITY
     Dosage: 800.4 MCG/DAY
     Route: 037
  9. TRIMETHOPRIM. [Concomitant]
     Active Substance: TRIMETHOPRIM
  10. TRANSDERM SCOP [Concomitant]
     Active Substance: SCOPOLAMINE
  11. XOPENEX [Concomitant]
     Active Substance: LEVALBUTEROL HYDROCHLORIDE
  12. REGLAN [Concomitant]
     Active Substance: METOCLOPRAMIDE HYDROCHLORIDE
  13. CARAFATE [Concomitant]
     Active Substance: SUCRALFATE
  14. COLACE [Concomitant]
     Active Substance: DOCUSATE SODIUM
  15. BACLOFEN. [Concomitant]
     Active Substance: BACLOFEN
  16. BUSPAR [Concomitant]
     Active Substance: BUSPIRONE HYDROCHLORIDE
  17. CLARITIN [Concomitant]
     Active Substance: LORATADINE

REACTIONS (1)
  - Respiratory arrest [Fatal]
